FAERS Safety Report 9772249 (Version 3)
Quarter: 2014Q1

REPORT INFORMATION
  Report Type: Report from Study
  Country: US (occurrence: US)
  Receive Date: 20131219
  Receipt Date: 20140122
  Transmission Date: 20141002
  Serious: Yes (Hospitalization, Other)
  Sender: FDA-Public Use
  Company Number: US-ASTELLAS-2013US013064

PATIENT
  Age: 63 Year
  Sex: Female

DRUGS (9)
  1. ERLOTINIB TABLET [Suspect]
     Indication: MALIGNANT GLIOMA
     Dosage: 100 MG, UID/QD
     Route: 048
     Dates: start: 20131101, end: 20131126
  2. ERLOTINIB TABLET [Suspect]
     Dosage: 100 MG, UID/QD
     Route: 048
  3. ERLOTINIB TABLET [Suspect]
     Dosage: 2000 MG, PULSATILE DOSES
  4. LAMICTAL [Concomitant]
     Indication: PRODUCT USED FOR UNKNOWN INDICATION
     Dosage: 250 QAM AND 350 QOM
     Route: 065
  5. ZONEGRAN [Concomitant]
     Indication: PRODUCT USED FOR UNKNOWN INDICATION
     Dosage: UNK
     Route: 065
  6. COLACE [Concomitant]
     Indication: PRODUCT USED FOR UNKNOWN INDICATION
     Dosage: UNK
     Route: 065
  7. SENNA                              /00142201/ [Concomitant]
     Indication: PRODUCT USED FOR UNKNOWN INDICATION
     Dosage: QHR
     Route: 065
  8. SYNTHROID [Concomitant]
     Indication: PRODUCT USED FOR UNKNOWN INDICATION
     Dosage: 50 UG, UID/QD
     Route: 065
  9. BONIVA [Concomitant]
     Indication: PRODUCT USED FOR UNKNOWN INDICATION
     Dosage: 150 G, MONTHLY
     Route: 065

REACTIONS (4)
  - Off label use [Unknown]
  - Aphasia [Recovered/Resolved]
  - Convulsion [Recovered/Resolved]
  - Malignant neoplasm progression [Unknown]
